FAERS Safety Report 7360712-7 (Version None)
Quarter: 2011Q1

REPORT INFORMATION
  Report Type: 
  Country: None (occurrence: None)
  Receive Date: 20110318
  Receipt Date: 20110316
  Transmission Date: 20110831
  Serious: Yes (Death, Hospitalization)
  Sender: FDA-Public Use
  Company Number: ES-BRISTOL-MYERS SQUIBB COMPANY-15610983

PATIENT
  Age: 72 Year
  Sex: Male

DRUGS (7)
  1. LEXATIN [Concomitant]
  2. EMCONCOR [Concomitant]
  3. ADALAT [Concomitant]
  4. PREVENCOR [Concomitant]
  5. ASPIRIN [Concomitant]
  6. MOLSIDOMINE [Concomitant]
  7. SPRYCEL [Suspect]
     Dates: start: 20110222, end: 20110302

REACTIONS (1)
  - ACUTE PULMONARY OEDEMA [None]
